FAERS Safety Report 10297388 (Version 1)
Quarter: 2014Q3

REPORT INFORMATION
  Report Type: Spontaneous
  Country: FR (occurrence: FR)
  Receive Date: 20140711
  Receipt Date: 20140711
  Transmission Date: 20150326
  Serious: Yes (Hospitalization)
  Sender: FDA-Public Use
  Company Number: FR-ORION CORPORATION ORION PHARMA-ENTC2014-0244

PATIENT
  Age: 73 Year
  Sex: Female

DRUGS (11)
  1. TRANXENE T-TAB [Suspect]
     Active Substance: CLORAZEPATE DIPOTASSIUM
     Route: 065
  2. LEXOMIL [Suspect]
     Active Substance: BROMAZEPAM
     Route: 065
  3. STALEVO [Suspect]
     Active Substance: CARBIDOPA\ENTACAPONE\LEVODOPA
     Dosage: STRENGTH: 150/37.5/200 MG
     Route: 048
  4. TRAMADOL [Suspect]
     Active Substance: TRAMADOL
     Route: 065
  5. ZOLPIDEM [Suspect]
     Active Substance: ZOLPIDEM\ZOLPIDEM TARTRATE
     Route: 065
  6. STILNOX [Suspect]
     Active Substance: ZOLPIDEM TARTRATE
     Route: 065
  7. STALEVO [Suspect]
     Active Substance: CARBIDOPA\ENTACAPONE\LEVODOPA
     Dosage: DOSE INCREASED
     Route: 048
     Dates: start: 20140509
  8. MADOPAR [Suspect]
     Active Substance: BENSERAZIDE HYDROCHLORIDE\LEVODOPA
     Dosage: STRENGTH: 25/100 MG
     Route: 048
  9. ALODONT [Concomitant]
     Active Substance: CETYLPYRIDINIUM CHLORIDE\CHLOROBUTANOL\EUGENOL
     Route: 065
  10. SYNTHOL [Concomitant]
     Route: 065
  11. OMEPRAZOLE. [Concomitant]
     Active Substance: OMEPRAZOLE
     Route: 065

REACTIONS (6)
  - Hallucination, visual [Recovered/Resolved]
  - Abnormal behaviour [Recovered/Resolved]
  - Disorientation [Recovered/Resolved]
  - Psychomotor hyperactivity [Recovered/Resolved]
  - Confusional state [Recovered/Resolved]
  - Gait disturbance [Recovered/Resolved]

NARRATIVE: CASE EVENT DATE: 201405
